FAERS Safety Report 6718551-3 (Version None)
Quarter: 2010Q2

REPORT INFORMATION
  Report Type: 
  Country: None (occurrence: None)
  Receive Date: 20100510
  Receipt Date: 20100504
  Transmission Date: 20101027
  Serious: Yes (Hospitalization)
  Sender: FDA-Public Use
  Company Number: US-GILEAD-2010-0028930

PATIENT
  Sex: Female
  Weight: 90.8 kg

DRUGS (17)
  1. LETAIRIS [Suspect]
     Indication: PULMONARY ARTERIAL HYPERTENSION
     Route: 048
     Dates: start: 20090915
  2. REVATIO [Concomitant]
  3. WARFARIN SODIUM [Concomitant]
  4. LASIX [Concomitant]
  5. ZAROXOLYN [Concomitant]
  6. CALCIUM [Concomitant]
  7. FISH OIL [Concomitant]
  8. GLUCOSAMINE [Concomitant]
  9. A-G TUSSIN [Concomitant]
  10. STOOL SOFTENER [Concomitant]
  11. SODIUM CHLORIDE [Concomitant]
  12. A-Z MULTIVITAMIN [Concomitant]
  13. HYDROCODONE BITARTRATE AND ACETAMINOPHEN [Concomitant]
  14. NEXIUM [Concomitant]
  15. FLONASE [Concomitant]
  16. ASTELIN [Concomitant]
  17. OXYGEN [Concomitant]

REACTIONS (1)
  - PRESYNCOPE [None]
